FAERS Safety Report 26068206 (Version 2)
Quarter: 2025Q4

REPORT INFORMATION
  Report Type: Spontaneous
  Country: EU (occurrence: EU)
  Receive Date: 20251120
  Receipt Date: 20251225
  Transmission Date: 20260117
  Serious: Yes (Disabling, Other)
  Sender: ROCHE
  Company Number: EU-ROCHE-10000433981

PATIENT
  Age: 40 Year
  Sex: Male
  Weight: 75 kg

DRUGS (3)
  1. ALECENSA [Suspect]
     Active Substance: ALECTINIB HYDROCHLORIDE
     Indication: Non-small cell lung cancer
     Dates: start: 202402, end: 202403
  2. ALECENSA [Suspect]
     Active Substance: ALECTINIB HYDROCHLORIDE
     Dates: start: 202403
  3. ALUNBRIG [Suspect]
     Active Substance: BRIGATINIB
     Indication: Non-small cell lung cancer

REACTIONS (22)
  - Hepatitis [Unknown]
  - Gait disturbance [Unknown]
  - Neuralgia [Unknown]
  - Rash [Unknown]
  - Disturbance in attention [Unknown]
  - Mania [Unknown]
  - Arthralgia [Unknown]
  - Bipolar disorder [Unknown]
  - Amnesia [Recovering/Resolving]
  - Acne [Unknown]
  - Dysgeusia [Recovered/Resolved]
  - Appetite disorder [Unknown]
  - Weight increased [Unknown]
  - Constipation [Unknown]
  - Blood bilirubin increased [Recovering/Resolving]
  - Muscular weakness [Unknown]
  - Dyspnoea [Unknown]
  - Aspartate aminotransferase increased [Recovering/Resolving]
  - Alanine aminotransferase increased [Recovering/Resolving]
  - Eructation [Unknown]
  - Flatulence [Unknown]
  - Joint stiffness [Unknown]

NARRATIVE: CASE EVENT DATE: 20250901
